FAERS Safety Report 10522398 (Version 1)
Quarter: 2014Q4

REPORT INFORMATION
  Report Type: Spontaneous
  Country: US (occurrence: US)
  Receive Date: 20141016
  Receipt Date: 20141016
  Transmission Date: 20150528
  Serious: No
  Sender: FDA-Public Use
  Company Number: US-ASTRAZENECA-2014SE75324

PATIENT
  Sex: Female

DRUGS (1)
  1. NEXIUM [Suspect]
     Active Substance: ESOMEPRAZOLE MAGNESIUM
     Indication: GASTRIC ULCER
     Route: 048
     Dates: start: 20140920

REACTIONS (5)
  - Chills [Unknown]
  - Back pain [Unknown]
  - Abdominal discomfort [Unknown]
  - Abdominal distension [Unknown]
  - Adverse event [Unknown]

NARRATIVE: CASE EVENT DATE: 201410
